FAERS Safety Report 4292049-7 (Version None)
Quarter: 2004Q1

REPORT INFORMATION
  Report Type: 
  Country: None (occurrence: None)
  Receive Date: 20040126
  Receipt Date: 20031113
  Transmission Date: 20041129
  Serious: No
  Sender: FDA-Public Use
  Company Number: USA031050917

PATIENT
  Age: 67 Year
  Sex: Female

DRUGS (3)
  1. FORTEO [Suspect]
     Dates: start: 20030929
  2. EVISTA [Concomitant]
  3. FOSAMAX [Concomitant]

REACTIONS (8)
  - ASTHENIA [None]
  - CONTUSION [None]
  - DYSPNOEA [None]
  - FAECES DISCOLOURED [None]
  - INJECTION SITE HAEMORRHAGE [None]
  - INJECTION SITE INDURATION [None]
  - INJECTION SITE PAIN [None]
  - SCOTOMA [None]
